FAERS Safety Report 6155427-7 (Version None)
Quarter: 2009Q2

REPORT INFORMATION
  Report Type: 
  Country: None (occurrence: None)
  Receive Date: 20090413
  Receipt Date: 20090305
  Transmission Date: 20091009
  Serious: Yes (Hospitalization)
  Sender: FDA-Public Use
  Company Number: OPER20090054

PATIENT
  Age: 57 Year
  Sex: Female

DRUGS (9)
  1. OPANA ER [Suspect]
     Indication: BACK PAIN
     Dosage: 10 MG, BID, PER ORAL
     Route: 048
     Dates: start: 20070619
  2. OPANA [Suspect]
     Indication: PAIN
     Dosage: 5 MG, Q6H PRN, PER ORAL
     Route: 048
     Dates: end: 20080701
  3. XANAX [Suspect]
     Indication: ANXIETY
     Dosage: 1 MG, TID, ORAL
     Route: 048
  4. AMBIEN [Concomitant]
  5. LUNESTA [Concomitant]
  6. TOPAMAX [Concomitant]
  7. ZANAFLEX [Concomitant]
  8. CYCLOBENZAPRINE [Concomitant]
  9. PHENERGAN [Concomitant]

REACTIONS (8)
  - BLASTOCYSTIS INFECTION [None]
  - CARDIAC ARREST [None]
  - CHEST PAIN [None]
  - CLOSTRIDIUM DIFFICILE COLITIS [None]
  - DEPRESSED LEVEL OF CONSCIOUSNESS [None]
  - MENTAL STATUS CHANGES [None]
  - MULTIPLE DRUG OVERDOSE ACCIDENTAL [None]
  - URINARY TRACT INFECTION FUNGAL [None]
